FAERS Safety Report 11480759 (Version 1)
Quarter: 2015Q3

REPORT INFORMATION
  Report Type: Spontaneous
  Country: US (occurrence: US)
  Receive Date: 20150909
  Receipt Date: 20150909
  Transmission Date: 20151125
  Serious: No
  Sender: FDA-Public Use
  Company Number: US-BAYER-2015-417079

PATIENT
  Age: 66 Year
  Sex: Male
  Weight: 93.42 kg

DRUGS (5)
  1. RENVELA [Concomitant]
     Active Substance: SEVELAMER CARBONATE
  2. PLAVIX [Concomitant]
     Active Substance: CLOPIDOGREL BISULFATE
  3. ISOSORB [Concomitant]
  4. PHOSLO [Concomitant]
     Active Substance: CALCIUM ACETATE
  5. MIRALAX [Suspect]
     Active Substance: POLYETHYLENE GLYCOL 3350
     Indication: CONSTIPATION
     Dosage: HALF TEASPOON, QD
     Route: 048
     Dates: start: 2012

REACTIONS (3)
  - Off label use [None]
  - Diarrhoea [Recovered/Resolved]
  - Product use issue [None]

NARRATIVE: CASE EVENT DATE: 2012
